FAERS Safety Report 5206699-4 (Version None)
Quarter: 2006Q4

REPORT INFORMATION
  Report Type: 
  Country: None (occurrence: None)
  Receive Date: 20061030
  Receipt Date: 20060825
  Transmission Date: 20070319
  Serious: No
  Sender: FDA-Public Use
  Company Number: 256451

PATIENT
  Age: 86 Year
  Sex: Male
  Weight: 77.1 kg

DRUGS (4)
  1. LEVEMIR [Suspect]
     Indication: INSULIN-REQUIRING TYPE II DIABETES MELLITUS
     Dosage: 22 IU, QD, SUBCUTANEOUS
     Route: 058
  2. PRANDIN [Concomitant]
  3. ACTOS [Concomitant]
  4. METFORMIN (METFORMIN HYDROCHLORIDE) [Concomitant]

REACTIONS (1)
  - BLOOD GLUCOSE DECREASED [None]
